FAERS Safety Report 5206504-6 (Version None)
Quarter: 2006Q4

REPORT INFORMATION
  Report Type: 
  Country: None (occurrence: None)
  Receive Date: 20061026
  Receipt Date: 20060828
  Transmission Date: 20070319
  Serious: No
  Sender: FDA-Public Use
  Company Number: 2006076080

PATIENT
  Sex: Female

DRUGS (1)
  1. LYRICA [Suspect]
     Indication: NEURALGIA
     Dosage: 150 MG (50 MG, 3 IN 1 D)

REACTIONS (1)
  - MYASTHENIA GRAVIS [None]
